FAERS Safety Report 17521486 (Version 2)
Quarter: 2020Q1

REPORT INFORMATION
  Report Type: Spontaneous
  Country: HR (occurrence: HR)
  Receive Date: 20200310
  Receipt Date: 20200326
  Transmission Date: 20200409
  Serious: Yes (Other)
  Sender: FDA-Public Use
  Company Number: HR-MYLANLABS-2020M1024608

PATIENT
  Age: 5 Decade
  Sex: Female

DRUGS (5)
  1. BIPERIDEN [Suspect]
     Active Substance: BIPERIDEN
     Indication: PRODUCT USED FOR UNKNOWN INDICATION
     Dosage: 4 MILLIGRAM, QD
     Route: 048
  2. PAROXETINE. [Suspect]
     Active Substance: PAROXETINE
     Indication: PRODUCT USED FOR UNKNOWN INDICATION
     Dosage: 20 MILLIGRAM, QD
     Route: 048
  3. XEPLION [Suspect]
     Active Substance: PALIPERIDONE PALMITATE
     Indication: PSYCHOTIC DISORDER
     Dosage: 150 MILLIGRAM, EVERY 4 WEEKS
     Route: 030
  4. DIAZEPAM. [Suspect]
     Active Substance: DIAZEPAM
     Indication: PRODUCT USED FOR UNKNOWN INDICATION
     Dosage: 2 MILLIGRAM, PRN
     Route: 048
  5. ARIPIPRAZOLE. [Suspect]
     Active Substance: ARIPIPRAZOLE
     Indication: PRODUCT USED FOR UNKNOWN INDICATION
     Dosage: 10 MILLIGRAM, QD
     Route: 048

REACTIONS (1)
  - Hyperprolactinaemia [Unknown]
